FAERS Safety Report 10208087 (Version 1)
Quarter: 2014Q2

REPORT INFORMATION
  Report Type: Spontaneous
  Country: JP (occurrence: JP)
  Receive Date: 20140530
  Receipt Date: 20140530
  Transmission Date: 20141212
  Serious: Yes (Other)
  Sender: FDA-Public Use
  Company Number: PHHY2014JP066342

PATIENT
  Sex: 0

DRUGS (2)
  1. NEORAL [Suspect]
     Indication: SJOGREN^S SYNDROME
     Dosage: UNK UKN, UNK
     Route: 048
  2. NEORAL [Suspect]
     Indication: OFF LABEL USE

REACTIONS (2)
  - Interstitial lung disease [Unknown]
  - Dysphagia [Unknown]
